FAERS Safety Report 8472231-5 (Version None)
Quarter: 2012Q2

REPORT INFORMATION
  Report Type: 
  Country: None (occurrence: None)
  Receive Date: 20120627
  Receipt Date: 20120614
  Transmission Date: 20120825
  Serious: No
  Sender: FDA-Public Use
  Company Number: US-ASTRAZENECA-2012SE40165

PATIENT
  Age: 78 Year
  Sex: Male
  Weight: 95.3 kg

DRUGS (4)
  1. DIABETES MEDICATION [Concomitant]
     Indication: DIABETES MELLITUS
  2. BLOOD PRESSURE MEDICATION [Concomitant]
     Indication: BLOOD PRESSURE ABNORMAL
  3. NEXIUM [Suspect]
     Indication: GASTROOESOPHAGEAL REFLUX DISEASE
     Dosage: 40 MG ONE HOUR BEFORE MEAL
     Route: 048
  4. METFORMIN HCL [Concomitant]

REACTIONS (2)
  - HYPERTENSION [None]
  - OFF LABEL USE [None]
